FAERS Safety Report 4638354-3 (Version None)
Quarter: 2005Q2

REPORT INFORMATION
  Report Type: 
  Country: None (occurrence: None)
  Receive Date: 20050415
  Receipt Date: 20050330
  Transmission Date: 20051028
  Serious: Yes (Hospitalization)
  Sender: FDA-Public Use
  Company Number: 200503IM000112

PATIENT
  Age: 61 Year
  Sex: Female

DRUGS (4)
  1. ADVAFERON (A643_INTERFERON ALFACON-1) [Suspect]
  2. CLOSTRIDIUM BUTYRICUM [Concomitant]
  3. DOMPERIDONE [Concomitant]
  4. LEVOFLOXACIN [Concomitant]

REACTIONS (5)
  - CROHN'S DISEASE [None]
  - DIABETES MELLITUS [None]
  - DIARRHOEA [None]
  - GASTRIC ULCER HAEMORRHAGE [None]
  - PYREXIA [None]
